FAERS Safety Report 11525500 (Version 1)
Quarter: 2015Q3

REPORT INFORMATION
  Report Type: Report from Study
  Country: US (occurrence: US)
  Receive Date: 20150918
  Receipt Date: 20150918
  Transmission Date: 20151125
  Serious: Yes (Hospitalization, Other)
  Sender: FDA-Public Use
  Company Number: US-REGENERON PHARMACEUTICALS, INC.-2014-20771

PATIENT
  Age: 56 Year
  Sex: Male

DRUGS (38)
  1. EYLEA [Suspect]
     Active Substance: AFLIBERCEPT
     Dosage: UNK,OD
     Dates: start: 20130312
  2. EYLEA [Suspect]
     Active Substance: AFLIBERCEPT
     Dosage: UNK,OS
     Dates: start: 20130409
  3. EYLEA [Suspect]
     Active Substance: AFLIBERCEPT
     Dosage: UNK,OD
     Dates: start: 20130507
  4. EYLEA [Suspect]
     Active Substance: AFLIBERCEPT
     Dosage: UNK, OD
     Dates: start: 20140515
  5. EYLEA [Suspect]
     Active Substance: AFLIBERCEPT
     Dosage: UNK, OS
     Dates: start: 20140902
  6. LISINOPRIL. [Concomitant]
     Active Substance: LISINOPRIL
     Indication: PROPHYLAXIS
     Dosage: 20 MG MILLIGRAM(S), QD
     Route: 048
  7. CRESTOR [Concomitant]
     Active Substance: ROSUVASTATIN CALCIUM
     Indication: HYPERCHOLESTEROLAEMIA
     Dosage: 20 MG MILLIGRAM(S), QD
     Route: 048
     Dates: start: 20140312
  8. AMOXICILLIN. [Concomitant]
     Active Substance: AMOXICILLIN
     Dosage: UNK, TID
     Route: 048
     Dates: start: 20140822
  9. EYLEA [Suspect]
     Active Substance: AFLIBERCEPT
     Dosage: UNK, OS
     Dates: start: 20130212
  10. EYLEA [Suspect]
     Active Substance: AFLIBERCEPT
     Dosage: UNK,OD
     Dates: start: 20130212
  11. EYLEA [Suspect]
     Active Substance: AFLIBERCEPT
     Dosage: UNK,OS
     Dates: start: 20130312
  12. EYLEA [Suspect]
     Active Substance: AFLIBERCEPT
     Dosage: UNK,OS
     Dates: start: 20130507
  13. EYLEA [Suspect]
     Active Substance: AFLIBERCEPT
     Dosage: UNK, OS
     Dates: start: 20141027
  14. VIGAMOX [Concomitant]
     Active Substance: MOXIFLOXACIN HYDROCHLORIDE
     Indication: INJECTION SITE IRRITATION
     Dosage: 1 GTT DROP(S), 12 PER DAY
     Route: 047
     Dates: start: 20130215
  15. PRED FORTE [Concomitant]
     Active Substance: PREDNISOLONE ACETATE
     Indication: INJECTION SITE IRRITATION
     Dosage: 1 GTT DROP(S), TID
     Route: 047
     Dates: start: 20130215
  16. ASPIRIN. [Concomitant]
     Active Substance: ASPIRIN
     Indication: PROPHYLAXIS
     Dosage: 81 MG MILLIGRAM(S), QD
     Route: 048
     Dates: start: 20140312
  17. LOVASTATIN. [Concomitant]
     Active Substance: LOVASTATIN
     Indication: PROPHYLAXIS
     Dosage: 20 MG MILLIGRAM(S), QD
     Route: 048
  18. EYLEA [Suspect]
     Active Substance: AFLIBERCEPT
     Dosage: UNK,OS
     Dates: start: 20131024
  19. NOVOLIN [Concomitant]
     Active Substance: INSULIN HUMAN
     Indication: DIABETES MELLITUS
     Dosage: 45 IU INTERNATIONAL UNIT(S), BID
     Route: 030
  20. GLUCOPHAGE [Concomitant]
     Active Substance: METFORMIN HYDROCHLORIDE
     Indication: DIABETES MELLITUS
     Dosage: 500 MG MILLIGRAM(S), BID
     Route: 048
  21. EFFIENT [Concomitant]
     Active Substance: PRASUGREL HYDROCHLORIDE
     Indication: PROPHYLAXIS
     Dosage: 10 MG MILLIGRAM(S), QD
     Route: 048
     Dates: start: 20140312
  22. EYLEA [Suspect]
     Active Substance: AFLIBERCEPT
     Indication: DIABETIC RETINAL OEDEMA
     Dosage: 2.0 MG MILLIGRAM(S), PER PROTOCOL
     Route: 031
     Dates: start: 20130115
  23. EYLEA [Suspect]
     Active Substance: AFLIBERCEPT
     Dosage: LASER, OS
     Dates: start: 20140909
  24. EYLEA [Suspect]
     Active Substance: AFLIBERCEPT
     Dosage: UNK, OS
     Dates: start: 20140929
  25. XARELTO [Concomitant]
     Active Substance: RIVAROXABAN
     Indication: PROPHYLAXIS
     Dosage: 20 MG MILLIGRAM(S), QD
     Route: 048
     Dates: start: 20140312
  26. EYLEA [Suspect]
     Active Substance: AFLIBERCEPT
     Dosage: UNK,OS
     Dates: start: 20131223
  27. EYLEA [Suspect]
     Active Substance: AFLIBERCEPT
     Dosage: LASER, OS
     Dates: start: 20140520
  28. CIPROFLOXACIN. [Concomitant]
     Active Substance: CIPROFLOXACIN
     Indication: INJECTION SITE IRRITATION
     Dosage: 500 MG MILLIGRAM(S), QD
     Route: 048
     Dates: start: 20130215
  29. WARFARIN [Concomitant]
     Active Substance: WARFARIN
     Dosage: 5 MG MILLIGRAM(S), QD
     Route: 048
  30. EYLEA [Suspect]
     Active Substance: AFLIBERCEPT
     Dosage: LASER, OS
     Dates: start: 20131231
  31. OFLOXACIN. [Concomitant]
     Active Substance: OFLOXACIN
     Indication: PROPHYLAXIS
     Dosage: 1.25 MG MILLIGRAM(S), MONTHLY
     Route: 047
     Dates: start: 20130115
  32. EYLEA [Suspect]
     Active Substance: AFLIBERCEPT
     Dosage: UNK,OD
     Dates: start: 20131024
  33. EYLEA [Suspect]
     Active Substance: AFLIBERCEPT
     Dosage: UNK,OS
     Dates: start: 20130115
  34. EYLEA [Suspect]
     Active Substance: AFLIBERCEPT
     Dosage: UNK, OD
     Dates: start: 20130115
  35. EYLEA [Suspect]
     Active Substance: AFLIBERCEPT
     Dosage: UNK,OD
     Dates: start: 20130409
  36. EYLEA [Suspect]
     Active Substance: AFLIBERCEPT
     Dosage: UNK,OS
     Dates: start: 20131121
  37. COREG [Concomitant]
     Active Substance: CARVEDILOL
     Indication: MYOCARDIAL INFARCTION
     Dosage: 6.25 MG MILLIGRAM(S), BID
     Route: 048
     Dates: start: 20140312
  38. RANEXA [Concomitant]
     Active Substance: RANOLAZINE
     Indication: ANGINA PECTORIS
     Dosage: 1000 MG MILLIGRAM(S), BID
     Route: 048
     Dates: start: 20140312

REACTIONS (1)
  - Angina pectoris [Recovered/Resolved]

NARRATIVE: CASE EVENT DATE: 20141030
